FAERS Safety Report 6761434-3 (Version None)
Quarter: 2010Q2

REPORT INFORMATION
  Report Type: 
  Country: None (occurrence: None)
  Receive Date: 20100607
  Receipt Date: 20100526
  Transmission Date: 20101027
  Serious: Yes (Disabling, Other)
  Sender: FDA-Public Use
  Company Number: OSCN-NO-0901S-0026

PATIENT
  Age: 60 Year
  Sex: Female

DRUGS (11)
  1. OMNISCAN [Suspect]
     Indication: DRUG USE FOR UNKNOWN INDICATION
     Dosage: 15 ML, SINGLE DOSE, I.V.
     Route: 042
     Dates: start: 20020115, end: 20020115
  2. MAGNEVIST [Suspect]
     Indication: DRUG USE FOR UNKNOWN INDICATION
     Dosage: 10 ML, SINGLE DOSE, INTRA-ARTICULAR ; SINGLE DOSE ; SINGLE DOSE
     Route: 014
     Dates: start: 20010101, end: 20010101
  3. MAGNEVIST [Suspect]
     Indication: DRUG USE FOR UNKNOWN INDICATION
     Dosage: 10 ML, SINGLE DOSE, INTRA-ARTICULAR ; SINGLE DOSE ; SINGLE DOSE
     Route: 014
     Dates: start: 20010101, end: 20010101
  4. MAGNEVIST [Suspect]
     Indication: DRUG USE FOR UNKNOWN INDICATION
     Dosage: 10 ML, SINGLE DOSE, INTRA-ARTICULAR ; SINGLE DOSE ; SINGLE DOSE
     Route: 014
     Dates: start: 20060626, end: 20060626
  5. GADOLINIUM (UNSPECIFIED) [Suspect]
     Indication: DRUG USE FOR UNKNOWN INDICATION
     Dosage: SINGLE DOSE
     Dates: start: 20020719, end: 20020719
  6. METOCLOPRAMIDE [Concomitant]
  7. QUININE [Concomitant]
  8. LACTULOSE [Concomitant]
  9. REMERON [Concomitant]
  10. HALOPERIDOL (SERENASE) [Concomitant]
  11. EMPERAL [Concomitant]

REACTIONS (6)
  - AORTIC VALVE INCOMPETENCE [None]
  - AORTIC VALVE STENOSIS [None]
  - MITRAL VALVE CALCIFICATION [None]
  - MITRAL VALVE INCOMPETENCE [None]
  - NEPHROGENIC SYSTEMIC FIBROSIS [None]
  - PULMONARY FUNCTION TEST ABNORMAL [None]
